FAERS Safety Report 11094832 (Version 1)
Quarter: 2015Q2

REPORT INFORMATION
  Report Type: Spontaneous
  Country: US (occurrence: US)
  Receive Date: 20150506
  Receipt Date: 20150506
  Transmission Date: 20150821
  Serious: No
  Sender: FDA-Public Use
  Company Number: US-BAYER-2015-187799

PATIENT
  Age: 46 Year
  Sex: Female

DRUGS (1)
  1. BETASERON [Suspect]
     Active Substance: INTERFERON BETA-1B
     Indication: MULTIPLE SCLEROSIS
     Dosage: 1 ML, QOD
     Route: 058
     Dates: start: 20141201

REACTIONS (6)
  - Depression [None]
  - Injection site pain [None]
  - Injection site bruising [None]
  - Visual impairment [None]
  - Fatigue [None]
  - Fall [None]

NARRATIVE: CASE EVENT DATE: 201504
